FAERS Safety Report 7903380-5 (Version None)
Quarter: 2011Q4

REPORT INFORMATION
  Report Type: 
  Country: None (occurrence: None)
  Receive Date: 20111109
  Receipt Date: 20111031
  Transmission Date: 20120403
  Serious: Yes (Other)
  Sender: FDA-Public Use
  Company Number: US-BAYER-2011-106073

PATIENT
  Age: 66 Year
  Sex: Female
  Weight: 68 kg

DRUGS (3)
  1. LISINOPRIL [Concomitant]
  2. ASPIRIN [Suspect]
     Indication: PAIN
     Dosage: BOTTLE COUNT 40S
     Route: 048
     Dates: start: 20111028, end: 20111028
  3. AMLODIPINE [Concomitant]

REACTIONS (4)
  - DEAFNESS [None]
  - TINNITUS [None]
  - HEARING IMPAIRED [None]
  - VERTIGO [None]
